FAERS Safety Report 8259041-9 (Version None)
Quarter: 2012Q2

REPORT INFORMATION
  Report Type: 
  Country: None (occurrence: None)
  Receive Date: 20120404
  Receipt Date: 20120328
  Transmission Date: 20120825
  Serious: Yes (Hospitalization)
  Sender: FDA-Public Use
  Company Number: DE-B.I. PHARMACEUTICALS,INC./RIDGEFIELD-2012-DE-00904DE

PATIENT
  Sex: Male
  Weight: 75 kg

DRUGS (6)
  1. CLINDAMYCIN [Concomitant]
     Indication: TONSILLITIS
     Route: 048
     Dates: start: 20120227, end: 20120227
  2. VIRAMUNE [Suspect]
     Dosage: 400 MG
     Route: 048
     Dates: start: 20120207, end: 20120228
  3. TDF/FTC [Concomitant]
     Indication: HIV INFECTION
     Dosage: 1 ANZ
     Route: 048
     Dates: start: 20120124, end: 20120228
  4. DICLOFENAC SODIUM [Concomitant]
     Indication: INFLUENZA LIKE ILLNESS
     Route: 048
     Dates: start: 20120224, end: 20120225
  5. IBUPROFEN [Concomitant]
     Indication: INFLUENZA LIKE ILLNESS
     Route: 048
     Dates: start: 20120224, end: 20120225
  6. VIRAMUNE [Suspect]
     Indication: HIV INFECTION
     Dosage: 200 MG
     Route: 048
     Dates: start: 20120124, end: 20120206

REACTIONS (3)
  - ABDOMINAL PAIN UPPER [None]
  - DRUG RASH WITH EOSINOPHILIA AND SYSTEMIC SYMPTOMS [None]
  - INFLUENZA LIKE ILLNESS [None]
